FAERS Safety Report 4457834-7 (Version None)
Quarter: 2004Q3

REPORT INFORMATION
  Report Type: 
  Country: None (occurrence: None)
  Receive Date: 20040924
  Receipt Date: 20040913
  Transmission Date: 20050211
  Serious: Yes (Other)
  Sender: FDA-Public Use
  Company Number: IE-MERCK-0409GBR00130

PATIENT
  Age: 85 Year
  Sex: Male

DRUGS (3)
  1. CHLORAMPHENICOL [Concomitant]
     Route: 047
  2. VIOXX [Suspect]
     Indication: SCIATICA
     Route: 048
     Dates: start: 20040426
  3. VIOXX [Suspect]
     Indication: OSTEOPOROTIC FRACTURE
     Route: 048
     Dates: start: 20040426

REACTIONS (4)
  - AGITATION [None]
  - ANXIETY [None]
  - CONFUSIONAL STATE [None]
  - DISTURBANCE IN ATTENTION [None]
